FAERS Safety Report 8964053 (Version 1)
Quarter: 2012Q4

REPORT INFORMATION
  Report Type: 
  Country: CA (occurrence: CA)
  Receive Date: 20121213
  Receipt Date: 20121213
  Transmission Date: 20130627
  Serious: Yes (Life-Threatening, Hospitalization)
  Sender: FDA-Public Use
  Company Number: CA-B.I. PHARMACEUTICALS,INC./RIDGEFIELD-2012-CN-02532CN

PATIENT
  Age: 51 Year
  Sex: Female
  Weight: 63 kg

DRUGS (6)
  1. PRADAX [Suspect]
     Dosage: 300 mg
     Route: 048
  2. BUPROPION [Concomitant]
  3. CIPROFLOXACIN [Concomitant]
  4. COVERSYL [Concomitant]
  5. CRESTOR [Concomitant]
  6. METOPROLOL [Concomitant]

REACTIONS (5)
  - Aortic stenosis [Not Recovered/Not Resolved]
  - Cardiac arrest [Not Recovered/Not Resolved]
  - Cardiac valve replacement complication [Not Recovered/Not Resolved]
  - Cardiogenic shock [Not Recovered/Not Resolved]
  - Thrombosis [Not Recovered/Not Resolved]
